FAERS Safety Report 4738252-0 (Version None)
Quarter: 2005Q3

REPORT INFORMATION
  Report Type: 
  Country: None (occurrence: None)
  Receive Date: 20050809
  Receipt Date: 20050627
  Transmission Date: 20060218
  Serious: Yes (Other)
  Sender: FDA-Public Use
  Company Number: JP-MERCK-0507USA03247

PATIENT
  Age: 76 Year
  Sex: Female
  Weight: 52 kg

DRUGS (2)
  1. PRINIVIL [Suspect]
     Indication: PROPHYLAXIS
     Route: 048
     Dates: start: 19960101
  2. [THERAPY UNSPECIFIED] [Concomitant]
     Route: 065

REACTIONS (6)
  - BLOOD CREATININE INCREASED [None]
  - ESSENTIAL HYPERTENSION [None]
  - HYPERKALAEMIA [None]
  - RENAL ARTERY ATHEROSCLEROSIS [None]
  - RENAL ARTERY STENOSIS [None]
  - RENAL IMPAIRMENT [None]
